FAERS Safety Report 6165363-8 (Version None)
Quarter: 2009Q2

REPORT INFORMATION
  Report Type: 
  Country: None (occurrence: None)
  Receive Date: 20090423
  Receipt Date: 20090417
  Transmission Date: 20091009
  Serious: Yes (Hospitalization)
  Sender: FDA-Public Use
  Company Number: US-B.I. PHARMACEUTICALS,INC./RIDGEFIELD-2009-BP-03637BP

PATIENT
  Sex: Male

DRUGS (2)
  1. FLOMAX [Suspect]
  2. BENICAR [Suspect]

REACTIONS (1)
  - BLOOD PRESSURE DECREASED [None]
